FAERS Safety Report 10922719 (Version 2)
Quarter: 2015Q1

REPORT INFORMATION
  Report Type: Spontaneous
  Country: JP (occurrence: JP)
  Receive Date: 20150317
  Receipt Date: 20150330
  Transmission Date: 20150721
  Serious: Yes (Hospitalization, Other)
  Sender: FDA-Public Use
  Company Number: JP-GLAXOSMITHKLINE-JP2014JPN022193

PATIENT
  Age: 48 Year
  Sex: Male
  Weight: 57 kg

DRUGS (8)
  1. LAMICTAL [Suspect]
     Active Substance: LAMOTRIGINE
     Indication: ANTIDEPRESSANT THERAPY
     Dosage: 25 MG, QD
     Route: 048
     Dates: start: 20140908
  2. LAMICTAL [Suspect]
     Active Substance: LAMOTRIGINE
     Dosage: 100 MG, BID
     Route: 048
     Dates: start: 20141015, end: 20141112
  3. LAMICTAL [Suspect]
     Active Substance: LAMOTRIGINE
     Dosage: 25 MG, BID
     Route: 048
     Dates: start: 20140924
  4. LANDSEN [Concomitant]
     Active Substance: CLONAZEPAM
     Indication: CATATONIA
     Dosage: 6 MG, TID
     Dates: start: 201410
  5. LIMAS [Concomitant]
     Active Substance: LITHIUM CARBONATE
     Dosage: UNK
  6. LAMICTAL [Suspect]
     Active Substance: LAMOTRIGINE
     Dosage: 25 MG, QID
     Route: 048
     Dates: start: 20141008
  7. REFLEX [Concomitant]
     Active Substance: MIRTAZAPINE
  8. ROHYPNOL [Concomitant]
     Active Substance: FLUNITRAZEPAM
     Dosage: UNK

REACTIONS (6)
  - Drug reaction with eosinophilia and systemic symptoms [Unknown]
  - Erythema [Unknown]
  - Pyrexia [Unknown]
  - Drug eruption [Recovered/Resolved]
  - Alanine aminotransferase increased [Unknown]
  - Rash maculo-papular [Unknown]

NARRATIVE: CASE EVENT DATE: 20141112
